FAERS Safety Report 12822080 (Version 1)
Quarter: 2016Q4

REPORT INFORMATION
  Report Type: Spontaneous
  Country: GB (occurrence: GB)
  Receive Date: 20161007
  Receipt Date: 20161007
  Transmission Date: 20170207
  Serious: Yes (Other)
  Sender: FDA-Public Use
  Company Number: GB-SUN PHARMACEUTICAL INDUSTRIES LTD-2016RR-125396

PATIENT
  Age: 66 Year
  Sex: Female
  Weight: 50.8 kg

DRUGS (4)
  1. ACTAVIS UK LEVOTHYROXINE [Concomitant]
     Active Substance: LEVOTHYROXINE
     Indication: PRODUCT USED FOR UNKNOWN INDICATION
     Dosage: 150 ?G, QD
     Route: 065
  2. CO-AMOXICLAV [Suspect]
     Active Substance: AMOXICILLIN\CLAVULANIC ACID
     Indication: GASTROINTESTINAL INFECTION
     Dosage: 500/125MG
     Route: 048
     Dates: start: 20160905
  3. FULTIUM-D3 [Concomitant]
     Indication: PRODUCT USED FOR UNKNOWN INDICATION
     Dosage: 800 IU, UNK
     Route: 065
  4. LOPERAMIDE [Suspect]
     Active Substance: LOPERAMIDE
     Indication: PRODUCT USED FOR UNKNOWN INDICATION
     Dosage: 4 MG, TID
     Route: 048

REACTIONS (3)
  - Gastrointestinal stoma output abnormal [Recovered/Resolved]
  - Night sweats [Recovered/Resolved]
  - Constipation [Recovered/Resolved]

NARRATIVE: CASE EVENT DATE: 20160905
